FAERS Safety Report 17930759 (Version 1)
Quarter: 2020Q2

REPORT INFORMATION
  Report Type: Spontaneous
  Country: US (occurrence: US)
  Receive Date: 20200623
  Receipt Date: 20200623
  Transmission Date: 20200714
  Serious: Yes (Other)
  Sender: FDA-Public Use
  Company Number: US-BAYER-2020-121358

PATIENT
  Sex: Female

DRUGS (1)
  1. MIRENA [Suspect]
     Active Substance: LEVONORGESTREL
     Indication: CONTRACEPTION
     Dosage: 20 ?G PER DAY, CONTINUOUSLY
     Route: 015
     Dates: start: 2020

REACTIONS (7)
  - Feeling abnormal [None]
  - Abdominal pain lower [None]
  - Headache [None]
  - Emotional disorder [None]
  - Genital haemorrhage [None]
  - Malaise [None]
  - Irritability [None]

NARRATIVE: CASE EVENT DATE: 2020
